FAERS Safety Report 20250866 (Version 1)
Quarter: 2021Q4

REPORT INFORMATION
  Report Type: Spontaneous
  Country: US (occurrence: None)
  Receive Date: 20211229
  Receipt Date: 20211229
  Transmission Date: 20220303
  Serious: Yes (Hospitalization)
  Sender: FDA-Public Use
  Company Number: None

PATIENT
  Age: 55 Year
  Sex: Male
  Weight: 71.1 kg

DRUGS (12)
  1. CASIRIVIMAB\IMDEVIMAB [Suspect]
     Active Substance: CASIRIVIMAB\IMDEVIMAB
     Indication: COVID-19
     Dosage: FREQUENCY : ONCE;?
     Route: 042
     Dates: start: 20211217, end: 20211217
  2. REMDESIVIR [Concomitant]
     Active Substance: REMDESIVIR
  3. DEXAMETHASONE [Concomitant]
     Active Substance: DEXAMETHASONE
  4. FUROSEMIDE [Concomitant]
     Active Substance: FUROSEMIDE
  5. MORPHINE [Concomitant]
     Active Substance: MORPHINE
  6. BARICITINIB [Concomitant]
     Active Substance: BARICITINIB
  7. AZITHROMYCIN [Concomitant]
     Active Substance: AZITHROMYCIN
  8. CEFTRIAXONE [Concomitant]
     Active Substance: CEFTRIAXONE
  9. BENZONATATE [Concomitant]
     Active Substance: BENZONATATE
  10. GUAIFENESIN [Concomitant]
     Active Substance: GUAIFENESIN
  11. ENOXAPARIN [Concomitant]
     Active Substance: ENOXAPARIN
  12. ALBUTEROL [Concomitant]
     Active Substance: ALBUTEROL

REACTIONS (9)
  - Cough [None]
  - Nasal congestion [None]
  - Myalgia [None]
  - Dyspnoea [None]
  - Nausea [None]
  - Vomiting [None]
  - Diarrhoea [None]
  - Lung infiltration [None]
  - Hypoxia [None]

NARRATIVE: CASE EVENT DATE: 20211218
